FAERS Safety Report 4707892-7 (Version None)
Quarter: 2005Q3

REPORT INFORMATION
  Report Type: 
  Country: None (occurrence: None)
  Receive Date: 20050707
  Receipt Date: 20040629
  Transmission Date: 20060218
  Serious: No
  Sender: FDA-Public Use
  Company Number: US-BRISTOL-MYERS SQUIBB COMPANY-12628723

PATIENT
  Age: 83 Year
  Sex: Female

DRUGS (1)
  1. SINEMET CR [Suspect]
     Dosage: DOSE VALUE:  ^HIGH DOSES^

REACTIONS (1)
  - HALLUCINATION [None]
